FAERS Safety Report 18327550 (Version 1)
Quarter: 2020Q3

REPORT INFORMATION
  Report Type: Spontaneous
  Country: US (occurrence: US)
  Receive Date: 20200929
  Receipt Date: 20200929
  Transmission Date: 20201103
  Serious: Yes (Other)
  Sender: FDA-Public Use
  Company Number: US-PFIZER INC-2020374883

PATIENT
  Age: 68 Year
  Sex: Male
  Weight: 127.01 kg

DRUGS (1)
  1. FELDENE [Suspect]
     Active Substance: PIROXICAM
     Dosage: 20 MG(DAILY OR TWICE A DAY)
     Route: 048

REACTIONS (5)
  - Cervical vertebral fracture [Unknown]
  - Therapeutic response unexpected [Unknown]
  - Intervertebral disc protrusion [Unknown]
  - Pain [Unknown]
  - Product dose omission issue [Unknown]
